FAERS Safety Report 9222355 (Version 1)
Quarter: 2013Q2

REPORT INFORMATION
  Report Type: Spontaneous
  Country: US (occurrence: US)
  Receive Date: 20130410
  Receipt Date: 20130410
  Transmission Date: 20140414
  Serious: Yes (Other)
  Sender: FDA-Public Use
  Company Number: US-JNJFOC-20130403418

PATIENT
  Age: 48 Year
  Sex: Male
  Weight: 74.84 kg

DRUGS (1)
  1. BENGAY ULTRA STRENGTH TUBE [Suspect]
     Indication: ACCIDENTAL EXPOSURE TO PRODUCT
     Route: 047

REACTIONS (6)
  - Blindness [Recovering/Resolving]
  - Accidental exposure to product [Unknown]
  - Eye swelling [Not Recovered/Not Resolved]
  - Eye pain [Not Recovered/Not Resolved]
  - Blindness transient [None]
  - Vision blurred [None]
